FAERS Safety Report 26054479 (Version 1)
Quarter: 2025Q4

REPORT INFORMATION
  Report Type: Spontaneous
  Country: EU (occurrence: EU)
  Receive Date: 20251117
  Receipt Date: 20251117
  Transmission Date: 20260118
  Serious: Yes (Life-Threatening)
  Sender: FRESENIUS KABI
  Company Number: None

PATIENT
  Age: 63 Year
  Sex: Female

DRUGS (1)
  1. NOREPINEPHRINE BITARTRATE [Suspect]
     Active Substance: NOREPINEPHRINE BITARTRATE
     Indication: Blood pressure management
     Dosage: CONCENTRATE FOR SOLUTION FOR INFUSION
     Route: 042
     Dates: start: 20250814, end: 20250814

REACTIONS (7)
  - Product packaging confusion [Recovered/Resolved]
  - Atrial fibrillation [Recovered/Resolved]
  - Heart rate irregular [Recovered/Resolved]
  - Chest discomfort [Recovered/Resolved]
  - Hypertension [Recovered/Resolved]
  - Wrong product administered [Recovered/Resolved]
  - Accidental overdose [Recovered/Resolved]

NARRATIVE: CASE EVENT DATE: 20250814
